FAERS Safety Report 6383719-5 (Version None)
Quarter: 2009Q4

REPORT INFORMATION
  Report Type: 
  Country: None (occurrence: None)
  Receive Date: 20091001
  Receipt Date: 20090924
  Transmission Date: 20100525
  Serious: Yes (Death)
  Sender: FDA-Public Use
  Company Number: JP-ASTRAZENECA-2009SE06316

PATIENT
  Age: 71 Year
  Sex: Male
  Weight: 61 kg

DRUGS (9)
  1. XYLOCAINE [Suspect]
     Indication: LOCAL ANAESTHESIA
     Route: 058
     Dates: start: 20060113, end: 20060113
  2. IOPAMIDOL [Suspect]
     Dosage: DOSE: 4-5ML/TIME, A TOTAL OF ABOUT 20-25ML.
     Route: 022
     Dates: start: 20060113, end: 20060113
  3. HARTMANN [Concomitant]
     Dosage: DOSE UNKNOWN
     Route: 041
     Dates: start: 20060113, end: 20060113
  4. NOVO HEPARIN [Concomitant]
     Dosage: DOSE UNKNOWN
     Route: 013
     Dates: start: 20060113, end: 20060113
  5. DEPAS [Concomitant]
     Dosage: NUMBER OF SEPARATE DOSES UNKNOWN
     Route: 048
     Dates: end: 20060113
  6. FRANDOL [Concomitant]
     Dosage: NUMBER OF SEPARATE DOSES UNKNOWN
     Route: 048
  7. NORVASC [Concomitant]
     Route: 048
  8. PANALDINE [Concomitant]
     Route: 048
  9. SIGMART [Concomitant]
     Dosage: NUMBER OF SEPARATE DOSES UNKNOWN
     Route: 048

REACTIONS (1)
  - ANAPHYLACTIC SHOCK [None]
